FAERS Safety Report 4607384-X (Version None)
Quarter: 2005Q1

REPORT INFORMATION
  Report Type: 
  Country: None (occurrence: None)
  Receive Date: 20050309
  Receipt Date: 20050223
  Transmission Date: 20050727
  Serious: Yes (Life-Threatening)
  Sender: FDA-Public Use
  Company Number: FR_050105636

PATIENT
  Age: 54 Year
  Sex: Male
  Weight: 65 kg

DRUGS (2)
  1. GEMZAR [Suspect]
     Indication: LUNG NEOPLASM MALIGNANT
     Dosage: 1700 MG/1 OTHER
     Route: 050
     Dates: start: 20040917, end: 20041125
  2. KYTRIL [Concomitant]

REACTIONS (11)
  - ANOXIA [None]
  - CHILLS [None]
  - COUGH [None]
  - CYANOSIS [None]
  - DYSPNOEA [None]
  - GENERAL PHYSICAL HEALTH DETERIORATION [None]
  - HYPERHIDROSIS [None]
  - HYPOXIA [None]
  - LYMPHANGITIS [None]
  - PYREXIA [None]
  - TACHYPNOEA [None]
